FAERS Safety Report 12612512 (Version 1)
Quarter: 2016Q3

REPORT INFORMATION
  Report Type: Report from Study
  Country: US (occurrence: US)
  Receive Date: 20160801
  Receipt Date: 20160801
  Transmission Date: 20161109
  Serious: Yes (Other)
  Sender: FDA-Public Use
  Company Number: US-ABBVIE-16P-163-1688350-00

PATIENT
  Sex: Female

DRUGS (3)
  1. LUPRON DEPOT [Suspect]
     Active Substance: LEUPROLIDE ACETATE
     Route: 030
     Dates: start: 20160627
  2. LUPRON DEPOT [Suspect]
     Active Substance: LEUPROLIDE ACETATE
     Indication: ENDOMETRIOSIS
     Route: 030
     Dates: start: 2013, end: 2013
  3. LUPRON DEPOT [Suspect]
     Active Substance: LEUPROLIDE ACETATE
     Route: 030
     Dates: start: 2013, end: 2013

REACTIONS (6)
  - Mood altered [Unknown]
  - Uterine disorder [Recovered/Resolved]
  - Hot flush [Unknown]
  - Vulvovaginal dryness [Unknown]
  - Disease recurrence [Not Recovered/Not Resolved]
  - Uterine pain [Not Recovered/Not Resolved]

NARRATIVE: CASE EVENT DATE: 2014
